FAERS Safety Report 6863792-8 (Version None)
Quarter: 2010Q3

REPORT INFORMATION
  Report Type: 
  Country: None (occurrence: None)
  Receive Date: 20100721
  Receipt Date: 20080418
  Transmission Date: 20110219
  Serious: No
  Sender: FDA-Public Use
  Company Number: US-PFIZER INC-2008021977

PATIENT
  Sex: Female
  Weight: 54.5 kg

DRUGS (11)
  1. CHANTIX [Suspect]
     Indication: SMOKING CESSATION THERAPY
     Dates: start: 20080101
  2. WELLBUTRIN [Concomitant]
  3. FLEXERIL [Concomitant]
  4. ATENOLOL [Concomitant]
  5. SYNTHROID [Concomitant]
  6. PRILOSEC [Concomitant]
  7. VENTOLIN [Concomitant]
  8. SPIRIVA [Concomitant]
  9. ACETYLSALICYLIC ACID [Concomitant]
  10. VICODIN [Concomitant]
  11. ADVAIR DISKUS 100/50 [Concomitant]

REACTIONS (6)
  - ABDOMINAL PAIN UPPER [None]
  - COUGH [None]
  - HEART RATE INCREASED [None]
  - HIATUS HERNIA [None]
  - NAUSEA [None]
  - VOMITING [None]
